FAERS Safety Report 8829019 (Version 1)
Quarter: 2012Q4

REPORT INFORMATION
  Report Type: 
  Country: US (occurrence: US)
  Receive Date: 20121008
  Receipt Date: 20121008
  Transmission Date: 20130627
  Serious: Yes (Other)
  Sender: FDA-Public Use
  Company Number: US-ROCHE-1135818

PATIENT
  Sex: Male

DRUGS (6)
  1. RITUXAN [Suspect]
     Indication: CHRONIC LYMPHOCYTIC LEUKAEMIA
     Route: 065
  2. RITUXAN [Suspect]
     Indication: LYMPHOCYTIC LYMPHOMA
  3. FLUDARABINE [Concomitant]
  4. CYTOXAN [Concomitant]
  5. VINCRISTINE [Concomitant]
  6. PREDNISONE [Concomitant]

REACTIONS (8)
  - Anaemia [Unknown]
  - Platelet count decreased [Unknown]
  - Infection [Unknown]
  - White blood cell count decreased [Unknown]
  - Bone marrow failure [Unknown]
  - Lymphoma [Unknown]
  - Splenomegaly [Unknown]
  - Lymphadenopathy [Unknown]
